FAERS Safety Report 8100408-7 (Version None)
Quarter: 2012Q1

REPORT INFORMATION
  Report Type: 
  Country: None (occurrence: None)
  Receive Date: 20120129
  Receipt Date: 20111202
  Transmission Date: 20120608
  Serious: Yes (Other)
  Sender: FDA-Public Use
  Company Number: US-ABBOTT-11P-163-0866372-00

PATIENT
  Sex: Female
  Weight: 53.572 kg

DRUGS (14)
  1. ASACOL [Concomitant]
     Indication: PRODUCT USED FOR UNKNOWN INDICATION
     Dosage: 3 TABLETS AM/3 TABLETS PM
  2. FLAGYL [Concomitant]
     Dosage: THREE IN ONE DAY FOR FOUR WEEKS
  3. PLAQUENIL [Concomitant]
     Indication: PRODUCT USED FOR UNKNOWN INDICATION
  4. METHADONE HCL [Concomitant]
     Indication: PRODUCT USED FOR UNKNOWN INDICATION
     Dosage: 60MG IN AM / 50 AT BEDTIME
  5. HUMIRA [Suspect]
     Indication: CROHN'S DISEASE
     Dates: start: 20110711
  6. TAMOXIFEN CITRATE [Concomitant]
     Indication: BREAST CANCER
  7. IMITREX [Concomitant]
     Indication: MIGRAINE
     Dosage: 1 OR 2 TABLETS PRN
  8. ACIPHEX [Concomitant]
     Indication: PRODUCT USED FOR UNKNOWN INDICATION
  9. FLAGYL [Concomitant]
     Indication: INFECTION
  10. DILAUDID [Concomitant]
     Indication: PAIN
     Dosage: 1 OR 2 TABLETS PRN
  11. METHADONE HCL [Concomitant]
     Indication: PRODUCT USED FOR UNKNOWN INDICATION
     Dosage: 6 TABLETS AM/5 TABLETS PM
  12. MOBIC [Concomitant]
     Indication: ARTHRITIS
  13. CIPROFLOXACIN [Concomitant]
     Indication: PRODUCT USED FOR UNKNOWN INDICATION
  14. DILAUDID [Concomitant]
     Indication: CROHN'S DISEASE

REACTIONS (4)
  - FATIGUE [None]
  - ANAL INFECTION [None]
  - BLOOD PRESSURE FLUCTUATION [None]
  - ASTHENIA [None]
